FAERS Safety Report 14194781 (Version 1)
Quarter: 2017Q4

REPORT INFORMATION
  Report Type: Spontaneous
  Country: FR (occurrence: FR)
  Receive Date: 20171116
  Receipt Date: 20171116
  Transmission Date: 20180321
  Serious: Yes (Other)
  Sender: FDA-Public Use
  Company Number: FR-EMD SERONO-8203679

PATIENT
  Sex: Female

DRUGS (2)
  1. GONAL-F [Suspect]
     Active Substance: FOLLITROPIN
     Indication: IN VITRO FERTILISATION
  2. CETROTIDE [Suspect]
     Active Substance: CETRORELIX ACETATE
     Indication: IN VITRO FERTILISATION

REACTIONS (1)
  - Thrombocytopenia [Unknown]
